FAERS Safety Report 23687664 (Version 1)
Quarter: 2024Q1

REPORT INFORMATION
  Report Type: Report from Study
  Country: TW (occurrence: None)
  Receive Date: 20240329
  Receipt Date: 20240329
  Transmission Date: 20240410
  Serious: Yes (Other)
  Sender: FDA-Public Use
  Company Number: 2024A071736

PATIENT
  Sex: Male

DRUGS (3)
  1. IMFINZI [Suspect]
     Active Substance: DURVALUMAB
     Dosage: 840.0MG UNKNOWN
     Route: 041
     Dates: start: 20200514, end: 20211209
  2. IMFINZI [Suspect]
     Active Substance: DURVALUMAB
     Dosage: 960.0MG UNKNOWN
     Route: 041
     Dates: start: 20211231
  3. IMFINZI [Suspect]
     Active Substance: DURVALUMAB
     Dosage: 720.0MG UNKNOWN
     Route: 041
     Dates: start: 20230228, end: 20230819

REACTIONS (1)
  - Brain neoplasm [Unknown]
